FAERS Safety Report 12644292 (Version 2)
Quarter: 2016Q4

REPORT INFORMATION
  Report Type: Report from Study
  Country: CO (occurrence: CO)
  Receive Date: 20160811
  Receipt Date: 20161013
  Transmission Date: 20170207
  Serious: Yes (Death, Hospitalization)
  Sender: FDA-Public Use
  Company Number: CO-REGENERON PHARMACEUTICALS, INC.-2016-20169

PATIENT

DRUGS (2)
  1. EYLEA [Suspect]
     Active Substance: AFLIBERCEPT
     Dosage: 1 DF, Q2MON
     Dates: start: 20160312, end: 20160312
  2. EYLEA [Suspect]
     Active Substance: AFLIBERCEPT
     Indication: DIABETIC RETINAL OEDEMA
     Dosage: UNK UNK, MONTHLY
     Dates: start: 20160312

REACTIONS (3)
  - Renal disorder [Fatal]
  - Peripheral swelling [Not Recovered/Not Resolved]
  - Cardiac disorder [Fatal]

NARRATIVE: CASE EVENT DATE: 20160731
